FAERS Safety Report 25476627 (Version 1)
Quarter: 2025Q2

REPORT INFORMATION
  Report Type: Spontaneous
  Country: GB (occurrence: GB)
  Receive Date: 20250625
  Receipt Date: 20250625
  Transmission Date: 20250717
  Serious: Yes (Hospitalization, Other)
  Sender: JOHNSON AND JOHNSON
  Company Number: None

PATIENT
  Age: 77 Year
  Sex: Female

DRUGS (1)
  1. XARELTO [Suspect]
     Active Substance: RIVAROXABAN
     Indication: Atrial fibrillation
     Dosage: 20 MG, QD
     Route: 048

REACTIONS (6)
  - Cerebral haemorrhage [Recovering/Resolving]
  - Hypertension [Unknown]
  - Haemoglobin decreased [Unknown]
  - Arteriovenous malformation [Unknown]
  - Subarachnoid haemorrhage [Unknown]
  - Aneurysm [Unknown]

NARRATIVE: CASE EVENT DATE: 20250511
